FAERS Safety Report 7123545-2 (Version None)
Quarter: 2010Q4

REPORT INFORMATION
  Report Type: 
  Country: None (occurrence: None)
  Receive Date: 20101125
  Receipt Date: 20101119
  Transmission Date: 20110411
  Serious: Yes (Hospitalization)
  Sender: FDA-Public Use
  Company Number: FR-PFIZER INC-2010152899

PATIENT
  Age: 62 Year
  Sex: Male

DRUGS (10)
  1. DALACINE [Suspect]
     Indication: ARTHRITIS
     Dosage: UNK
     Route: 048
     Dates: start: 20100702, end: 20100819
  2. DALACINE [Suspect]
     Indication: STAPHYLOCOCCAL SEPSIS
  3. OFLOCET [Concomitant]
     Indication: ARTHRITIS
     Dosage: UNK
     Route: 048
     Dates: start: 20100702, end: 20100819
  4. OFLOCET [Concomitant]
     Indication: STAPHYLOCOCCAL SEPSIS
  5. PREVISCAN [Concomitant]
     Dosage: UNK
     Route: 048
  6. DIAMICRON [Concomitant]
     Indication: TYPE 2 DIABETES MELLITUS
     Dosage: UNK
     Route: 048
     Dates: end: 20100801
  7. LAMISIL [Concomitant]
     Dosage: UNK
     Route: 048
  8. OMIX [Concomitant]
     Dosage: 1 DF, 1X/DAY
     Route: 048
  9. NEXIUM [Concomitant]
     Dosage: 1 DF, 1X/DAY
     Route: 048
  10. LANTUS [Concomitant]
     Indication: TYPE 2 DIABETES MELLITUS
     Dosage: UNK
     Route: 058

REACTIONS (3)
  - PRURITUS [None]
  - PYREXIA [None]
  - URTICARIA [None]
